FAERS Safety Report 6411886-3 (Version None)
Quarter: 2009Q4

REPORT INFORMATION
  Report Type: 
  Country: None (occurrence: None)
  Receive Date: 20091020
  Receipt Date: 20091007
  Transmission Date: 20100525
  Serious: Yes (Death, Hospitalization)
  Sender: FDA-Public Use
  Company Number: 2009AC000174

PATIENT
  Age: 81 Year
  Sex: Female

DRUGS (10)
  1. DIGOXIN [Suspect]
  2. ASPIRIN [Concomitant]
  3. CARDIZEM [Concomitant]
  4. PEPCID [Concomitant]
  5. VICODIN [Concomitant]
  6. PROVENTIL-HFA [Concomitant]
  7. ATROVENT [Concomitant]
  8. COUMADIN [Concomitant]
  9. VALSARTAN [Concomitant]
  10. LASIX [Concomitant]

REACTIONS (24)
  - ABNORMAL FAECES [None]
  - ACUTE RESPIRATORY FAILURE [None]
  - ANAEMIA [None]
  - ARTERIOSCLEROSIS [None]
  - ATRIAL FIBRILLATION [None]
  - BENIGN GASTROINTESTINAL NEOPLASM [None]
  - CACHEXIA [None]
  - CARDIAC FAILURE CONGESTIVE [None]
  - CHRONIC OBSTRUCTIVE PULMONARY DISEASE [None]
  - COAGULATION TEST ABNORMAL [None]
  - CONSTIPATION [None]
  - ECONOMIC PROBLEM [None]
  - HYPOTENSION [None]
  - INJURY [None]
  - MALNUTRITION [None]
  - MENTAL DISORDER [None]
  - PAIN [None]
  - PLEURAL EFFUSION [None]
  - PULMONARY OEDEMA [None]
  - RENAL FAILURE ACUTE [None]
  - RENAL FAILURE CHRONIC [None]
  - SOCIAL AVOIDANT BEHAVIOUR [None]
  - SURGERY [None]
  - VASCULAR PSEUDOANEURYSM [None]
